FAERS Safety Report 14074435 (Version 1)
Quarter: 2017Q4

REPORT INFORMATION
  Report Type: Spontaneous
  Country: JP (occurrence: JP)
  Receive Date: 20171011
  Receipt Date: 20171011
  Transmission Date: 20180321
  Serious: Yes (Other)
  Sender: FDA-Public Use
  Company Number: JP-PFIZER INC-2017359640

PATIENT
  Age: 53 Year
  Sex: Male

DRUGS (8)
  1. MECOBALAMIN [Concomitant]
     Active Substance: METHYLCOBALAMIN
     Dosage: 0.5 MG, 3X/DAY (AFTER EACH MEAL)
     Route: 048
  2. LYRICA [Suspect]
     Active Substance: PREGABALIN
     Dosage: UNK
     Dates: start: 20170309, end: 20170623
  3. GEBEN [Concomitant]
     Active Substance: SILVER SULFADIAZINE
     Indication: MOVEMENT DISORDER
     Route: 061
  4. NEUROTROPIN /06251301/ [Concomitant]
     Active Substance: ORYCTOLAGUS CUNICULUS SKIN
     Dosage: 2 DF, 2X/DAY (AFTER BREAKFAST AND AFTER DINNER)
     Route: 048
  5. AMLODIPINE [Concomitant]
     Active Substance: AMLODIPINE BESYLATE
     Dosage: 5 MG, 1X/DAY (AFTER BREAKFAST)
     Route: 048
  6. IDOMETHINE [Concomitant]
     Active Substance: INDOMETHACIN
     Dosage: 70 G, TO BE APPLIED AT AN APPROPRIATE DOSE SEVERAL TIMES A DAY
     Route: 061
  7. LYRICA [Suspect]
     Active Substance: PREGABALIN
     Dosage: 25 MG, 2X/DAY (AFTER BREAKFAST AND AFTER DINNER)
     Route: 048
     Dates: start: 20170624
  8. LIMAPROST ALFADEX [Concomitant]
     Active Substance: LIMAPROST
     Dosage: 5 UG, 3X/DAY (AFTER EACH MEAL)
     Route: 048

REACTIONS (3)
  - Glaucoma [Unknown]
  - Cataract [Unknown]
  - Vision blurred [Not Recovered/Not Resolved]

NARRATIVE: CASE EVENT DATE: 201708
